FAERS Safety Report 17523698 (Version 1)
Quarter: 2020Q1

REPORT INFORMATION
  Report Type: Spontaneous
  Country: GB (occurrence: GB)
  Receive Date: 20200310
  Receipt Date: 20200310
  Transmission Date: 20200409
  Serious: Yes (Other)
  Sender: FDA-Public Use
  Company Number: GB-PFIZER INC-2020101082

PATIENT
  Age: 66 Year
  Sex: Male

DRUGS (2)
  1. FILGRASTIM [Suspect]
     Active Substance: FILGRASTIM
     Dosage: UNK
     Route: 065
  2. DOCETAXEL. [Suspect]
     Active Substance: DOCETAXEL
     Indication: PROSTATE CANCER
     Dosage: 148 MG
     Route: 042
     Dates: start: 20170327, end: 20170712

REACTIONS (11)
  - Pain [Unknown]
  - Anaemia [Unknown]
  - Blood pressure increased [Unknown]
  - Haemoglobin decreased [Unknown]
  - Sciatica [Unknown]
  - Infection [Unknown]
  - Neutrophil count increased [Unknown]
  - Pyrexia [Unknown]
  - Heart rate increased [Unknown]
  - Platelet count increased [Unknown]
  - White blood cell count decreased [Unknown]

NARRATIVE: CASE EVENT DATE: 201704
